FAERS Safety Report 7620664-9 (Version None)
Quarter: 2011Q3

REPORT INFORMATION
  Report Type: 
  Country: None (occurrence: None)
  Receive Date: 20110719
  Receipt Date: 20110712
  Transmission Date: 20111222
  Serious: Yes (Other)
  Sender: FDA-Public Use
  Company Number: US-GLAXOSMITHKLINE-A0876102A

PATIENT
  Age: 52 Year
  Sex: Female

DRUGS (4)
  1. PROAIR HFA [Concomitant]
  2. PROTONIX [Concomitant]
  3. ADVAIR DISKUS 100/50 [Suspect]
     Indication: ASTHMA
     Dosage: 1PUFF TWICE PER DAY
     Route: 055
     Dates: start: 20010101, end: 20110501
  4. PREDNISONE [Suspect]
     Indication: ASTHMA
     Route: 065

REACTIONS (12)
  - DRY EYE [None]
  - CORRECTIVE LENS USER [None]
  - VISION BLURRED [None]
  - BLOOD PRESSURE INCREASED [None]
  - EYE DISORDER [None]
  - EYE PAIN [None]
  - CATARACT [None]
  - HALO VISION [None]
  - SWELLING [None]
  - VISUAL IMPAIRMENT [None]
  - IMPAIRED HEALING [None]
  - STRESS [None]
